FAERS Safety Report 23268533 (Version 1)
Quarter: 2023Q4

REPORT INFORMATION
  Report Type: Spontaneous
  Country: US (occurrence: US)
  Receive Date: 20231206
  Receipt Date: 20231206
  Transmission Date: 20240110
  Serious: No
  Sender: FDA-Public Use
  Company Number: US-UPSHER-SMITH LABORATORIES, LLC-2023USL00664

PATIENT
  Sex: Female
  Weight: 56.689 kg

DRUGS (5)
  1. MIDODRINE HYDROCHLORIDE [Suspect]
     Active Substance: MIDODRINE HYDROCHLORIDE
     Indication: Hypotension
     Dosage: 5 MG, 1X/DAY
     Route: 048
     Dates: start: 20230627
  2. GLUTEN [Suspect]
     Active Substance: WHEAT GLUTEN
     Dosage: UNK
     Dates: end: 202307
  3. ATORVASTATIN [Concomitant]
     Active Substance: ATORVASTATIN
  4. CLOZAPINE [Concomitant]
     Active Substance: CLOZAPINE
  5. CITALOPRAM [Concomitant]
     Active Substance: CITALOPRAM HYDROBROMIDE

REACTIONS (2)
  - Change of bowel habit [Recovering/Resolving]
  - Coeliac disease [Recovering/Resolving]

NARRATIVE: CASE EVENT DATE: 20230101
